FAERS Safety Report 5842799-3 (Version None)
Quarter: 2008Q3

REPORT INFORMATION
  Report Type: 
  Country: None (occurrence: None)
  Receive Date: 20080811
  Receipt Date: 20080802
  Transmission Date: 20090109
  Serious: Yes (Disabling, Other)
  Sender: FDA-Public Use
  Company Number: 2008SP007421

PATIENT
  Age: 48 Year
  Sex: Female
  Weight: 133.3575 kg

DRUGS (2)
  1. PEG-INTRON [Suspect]
     Indication: HEPATITIS C
     Dosage: ; SC
     Route: 058
     Dates: start: 20080411
  2. RIBAVIRIN [Suspect]
     Indication: HEPATITIS C
     Dosage: ; PO
     Route: 048
     Dates: start: 20080411

REACTIONS (34)
  - ABDOMINAL DISTENSION [None]
  - ALOPECIA [None]
  - ASTHENIA [None]
  - BODY TEMPERATURE INCREASED [None]
  - BONE PAIN [None]
  - BURNING SENSATION [None]
  - CHILLS [None]
  - CONDITION AGGRAVATED [None]
  - CONFUSIONAL STATE [None]
  - DECREASED APPETITE [None]
  - DRY MOUTH [None]
  - DRY SKIN [None]
  - DYSGEUSIA [None]
  - DYSPHAGIA [None]
  - EPISTAXIS [None]
  - FATIGUE [None]
  - FEELING ABNORMAL [None]
  - FOLLICULITIS [None]
  - GASTRIC DISORDER [None]
  - HYPERHIDROSIS [None]
  - HYPOPHAGIA [None]
  - IMMUNE SYSTEM DISORDER [None]
  - INSOMNIA [None]
  - IRRITABILITY [None]
  - MASS [None]
  - MUSCLE ATROPHY [None]
  - NAUSEA [None]
  - PAROSMIA [None]
  - RASH GENERALISED [None]
  - RECTAL HAEMORRHAGE [None]
  - RESTLESS LEGS SYNDROME [None]
  - TREMOR [None]
  - VOMITING [None]
  - WEIGHT DECREASED [None]
